FAERS Safety Report 9429551 (Version 1)
Quarter: 2013Q3

REPORT INFORMATION
  Report Type: Spontaneous
  Country: GB (occurrence: GB)
  Receive Date: 20130730
  Receipt Date: 20130730
  Transmission Date: 20140515
  Serious: Yes (Disabling)
  Sender: FDA-Public Use
  Company Number: GB-TEVA-420190ISR

PATIENT
  Age: 73 Year
  Sex: Female
  Weight: 83 kg

DRUGS (11)
  1. ALENDRONIC ACID [Suspect]
     Indication: OSTEOPOROSIS POSTMENOPAUSAL
     Dosage: 10 MILLIGRAM DAILY;
     Route: 048
     Dates: start: 20060904, end: 20120918
  2. METFORMIN [Concomitant]
  3. AMLODIPINE [Concomitant]
  4. OMEPRAZOLE [Concomitant]
  5. CALCICHEW D3 [Concomitant]
  6. ATORVASTATIN [Concomitant]
  7. FUROSEMIDE [Concomitant]
  8. FERROUS FUMARATE [Concomitant]
  9. GLICLAZIDE [Concomitant]
  10. TRAMADOL [Concomitant]
  11. ASPIRIN [Concomitant]

REACTIONS (4)
  - Stress fracture [Recovered/Resolved with Sequelae]
  - Arthralgia [Unknown]
  - Mobility decreased [Unknown]
  - Weight bearing difficulty [Unknown]
